FAERS Safety Report 8300635-X (Version None)
Quarter: 2012Q2

REPORT INFORMATION
  Report Type: 
  Country: None (occurrence: None)
  Receive Date: 20120420
  Receipt Date: 20120413
  Transmission Date: 20120825
  Serious: Yes (Other)
  Sender: FDA-Public Use
  Company Number: PHHY2010CA86853

PATIENT
  Sex: Female

DRUGS (4)
  1. SANDOSTATIN [Suspect]
     Dosage: 1.5 ML, TID
     Route: 058
  2. SANDOSTATIN LAR [Suspect]
     Indication: NEUROENDOCRINE TUMOUR
     Dosage: 40 MG, EVERY FOUR WEEKS
     Route: 030
     Dates: start: 20101220
  3. SANDOSTATIN [Suspect]
     Indication: NEUROENDOCRINE TUMOUR
     Dosage: 1 ML, TID
     Route: 058
     Dates: start: 20100401
  4. SANDOSTATIN LAR [Suspect]
     Dosage: 60 MG, EVERY 4 WEEKS
     Route: 030

REACTIONS (18)
  - CONSTIPATION [None]
  - INJECTION SITE INDURATION [None]
  - ALOPECIA [None]
  - INJECTION SITE ERYTHEMA [None]
  - NEOPLASM PROGRESSION [None]
  - ABDOMINAL PAIN [None]
  - PAIN [None]
  - METASTASES TO LIVER [None]
  - ERYTHEMA [None]
  - ABDOMINAL DISTENSION [None]
  - BLOOD PARATHYROID HORMONE INCREASED [None]
  - FLUSHING [None]
  - INJECTION SITE SWELLING [None]
  - NEOPLASM MALIGNANT [None]
  - BLOOD CALCIUM INCREASED [None]
  - MALAISE [None]
  - INJECTION SITE MASS [None]
  - INJECTION SITE PAIN [None]
